FAERS Safety Report 7930832-4 (Version None)
Quarter: 2011Q4

REPORT INFORMATION
  Report Type: 
  Country: None (occurrence: None)
  Receive Date: 20111117
  Receipt Date: 20111108
  Transmission Date: 20120403
  Serious: Yes (Hospitalization, Other)
  Sender: FDA-Public Use
  Company Number: CL-357-2011

PATIENT
  Age: 86 Year
  Sex: Male

DRUGS (4)
  1. CIPROFLOXACIN [Suspect]
     Indication: LIVER ABSCESS
     Dosage: 800MG/DAY ORAL, JUST OVER 6WS
     Route: 048
  2. ANTIVITAMIN K [Concomitant]
  3. METRONIDAZOLE [Suspect]
     Indication: LIVER ABSCESS
     Dosage: 1.5G/DAY ORAL, JUST OVER 6WS
     Route: 048
  4. DIGOXIN [Concomitant]

REACTIONS (12)
  - DYSSTASIA [None]
  - CEREBELLAR ATAXIA [None]
  - PERIPHERAL SENSORY NEUROPATHY [None]
  - CEREBRAL SMALL VESSEL ISCHAEMIC DISEASE [None]
  - CENTRAL NERVOUS SYSTEM LESION [None]
  - AREFLEXIA [None]
  - CEREBELLAR SYNDROME [None]
  - OCULAR DYSMETRIA [None]
  - NYSTAGMUS [None]
  - DYSARTHRIA [None]
  - DIPLOPIA [None]
  - AXONAL NEUROPATHY [None]
